FAERS Safety Report 5545833-3 (Version None)
Quarter: 2007Q4

REPORT INFORMATION
  Report Type: 
  Country: None (occurrence: None)
  Receive Date: 20071211
  Receipt Date: 20070904
  Transmission Date: 20080405
  Serious: No
  Sender: FDA-Public Use
  Company Number: US-ASTRAZENECA-2007UW20827

PATIENT
  Sex: Female

DRUGS (3)
  1. SYMBICORT [Suspect]
     Dosage: 2 PUFF
     Route: 055
  2. ALBUTEROL [Concomitant]
     Route: 055
  3. SPIRIVA [Concomitant]

REACTIONS (2)
  - DRY THROAT [None]
  - THROAT IRRITATION [None]
